FAERS Safety Report 8235407-8 (Version None)
Quarter: 2012Q1

REPORT INFORMATION
  Report Type: 
  Country: None (occurrence: None)
  Receive Date: 20120326
  Receipt Date: 20120320
  Transmission Date: 20120608
  Serious: Yes (Death, Hospitalization)
  Sender: FDA-Public Use
  Company Number: US-MEDIMMUNE-MEDI-0014697

PATIENT
  Sex: Female

DRUGS (8)
  1. SPIRONOLACTONE [Concomitant]
  2. SYNAGIS [Suspect]
     Dates: start: 20111206, end: 20111229
  3. SILDENAFIL [Concomitant]
  4. POTASSIUM [Concomitant]
  5. SYNAGIS [Suspect]
     Dates: start: 20120220, end: 20120220
  6. ENALAPRIL MALEATE [Concomitant]
  7. FUROSEMIDE [Concomitant]
  8. METHADONE HCL [Concomitant]
     Dates: start: 20120101

REACTIONS (6)
  - RESPIRATORY SYNCYTIAL VIRUS INFECTION [None]
  - DEHYDRATION [None]
  - DYSPNOEA [None]
  - PYREXIA [None]
  - ELECTROLYTE IMBALANCE [None]
  - VOMITING [None]
